FAERS Safety Report 8764998 (Version 3)
Quarter: 2013Q4

REPORT INFORMATION
  Report Type: Spontaneous
  Country: US (occurrence: US)
  Receive Date: 20120903
  Receipt Date: 20131031
  Transmission Date: 20140711
  Serious: Yes (Hospitalization)
  Sender: FDA-Public Use
  Company Number: US-009507513-1208USA011097

PATIENT
  Age: 3 Year
  Sex: Female

DRUGS (3)
  1. HEXADROL TABLETS [Suspect]
     Indication: PHARYNGITIS
     Dosage: 10 MG, UNK
     Route: 048
  2. ACETAMINOPHEN [Concomitant]
     Indication: PHARYNGITIS
  3. AMOXICILLIN [Concomitant]
     Indication: PHARYNGITIS

REACTIONS (2)
  - Tonsillar hypertrophy [Recovered/Resolved]
  - Drug administration error [Unknown]
